FAERS Safety Report 6517999-X (Version None)
Quarter: 2009Q4

REPORT INFORMATION
  Report Type: 
  Country: None (occurrence: None)
  Receive Date: 20091224
  Receipt Date: 20091215
  Transmission Date: 20100525
  Serious: Yes (Other)
  Sender: FDA-Public Use
  Company Number: US-ELI_LILLY_AND_COMPANY-US200912003901

PATIENT
  Age: 53 Year
  Sex: Female

DRUGS (5)
  1. CYMBALTA [Suspect]
     Indication: MAJOR DEPRESSION
     Dosage: 1 D/F, UNK
  2. METFORMIN HCL [Concomitant]
     Dosage: 1000 MG, DAILY (1/D)
  3. LANTUS [Concomitant]
  4. NOVOLOG [Concomitant]
  5. ALTACE [Concomitant]

REACTIONS (3)
  - ADVERSE EVENT [None]
  - BLOOD CREATINE PHOSPHOKINASE INCREASED [None]
  - DRUG WITHDRAWAL SYNDROME [None]
